FAERS Safety Report 7532436-4 (Version None)
Quarter: 2011Q2

REPORT INFORMATION
  Report Type: 
  Country: None (occurrence: None)
  Receive Date: 20110608
  Receipt Date: 20110603
  Transmission Date: 20111010
  Serious: Yes (Hospitalization, Disabling, Other)
  Sender: FDA-Public Use
  Company Number: JP-PFIZER INC-2011090035

PATIENT
  Age: 72 Year
  Sex: Male
  Weight: 78.4 kg

DRUGS (7)
  1. LIPITOR [Suspect]
     Indication: DYSLIPIDAEMIA
     Dosage: 10 MG, 1X/DAY
     Route: 048
     Dates: start: 20100414
  2. BISOPROLOL FUMARATE [Concomitant]
     Indication: HYPERTENSION
     Dosage: 2.5 MG, 1X/DAY
     Route: 048
     Dates: start: 20100713
  3. MICARDIS [Concomitant]
     Indication: HYPERTENSION
     Dosage: 40 MG, 1X/DAY
     Route: 048
     Dates: start: 20100323
  4. ASPIRIN [Suspect]
     Indication: ATRIAL FIBRILLATION
     Dosage: 100 MG, 1X/DAY
     Route: 048
     Dates: start: 20100713
  5. AMLODIPINE/TELMISARTAN [Concomitant]
     Indication: HYPERTENSION
     Dosage: [AMLODIPINE 5MG] / [TELMISARTAN 40MG], 1X/DAY
     Route: 048
     Dates: start: 20110127
  6. DISOPYRAMIDE PHOSPHATE [Concomitant]
     Indication: ARRHYTHMIA
     Dosage: 150 MG, 2X/DAY
     Route: 048
     Dates: start: 20110127
  7. ALLOPURINOL [Concomitant]
     Indication: HYPERURICAEMIA
     Dosage: 100 MG, 1X/DAY
     Route: 048
     Dates: start: 20101012

REACTIONS (1)
  - CEREBRAL HAEMORRHAGE [None]
